FAERS Safety Report 7288436-5 (Version None)
Quarter: 2011Q1

REPORT INFORMATION
  Report Type: 
  Country: None (occurrence: None)
  Receive Date: 20110211
  Receipt Date: 20110207
  Transmission Date: 20110831
  Serious: Yes (Other)
  Sender: FDA-Public Use
  Company Number: A0912760A

PATIENT
  Sex: Male

DRUGS (1)
  1. FLONASE [Suspect]
     Dates: start: 20100101

REACTIONS (1)
  - LIMB OPERATION [None]
